FAERS Safety Report 8299538-9 (Version None)
Quarter: 2012Q2

REPORT INFORMATION
  Report Type: 
  Country: None (occurrence: None)
  Receive Date: 20120419
  Receipt Date: 20120403
  Transmission Date: 20120825
  Serious: Yes (Hospitalization)
  Sender: FDA-Public Use
  Company Number: CHPA2012US008782

PATIENT
  Age: 86 Year
  Sex: Female

DRUGS (1)
  1. GAS-X EXTSTR CHEWABLE TABS CHERRY CREME [Suspect]
     Indication: FLATULENCE
     Dosage: 2 DF, ONCE/SINGLE
     Route: 048
     Dates: start: 20120403, end: 20120403

REACTIONS (2)
  - DIVERTICULUM [None]
  - HAEMATOCHEZIA [None]
